FAERS Safety Report 13338964 (Version 2)
Quarter: 2017Q2

REPORT INFORMATION
  Report Type: Report from Study
  Country: US (occurrence: US)
  Receive Date: 20170315
  Receipt Date: 20170526
  Transmission Date: 20170830
  Serious: Yes (Death)
  Sender: FDA-Public Use
  Company Number: US-OTSUKA-2017_005623

PATIENT
  Sex: Female

DRUGS (2)
  1. DEXTROMETHORPHAN/QUINIDINE [Suspect]
     Active Substance: DEXTROMETHORPHAN HYDROBROMIDE\QUINIDINE SULFATE
     Indication: AFFECT LABILITY
     Dosage: 20/10MG, (1 DF BID)
     Route: 048
     Dates: start: 2014
  2. DEXTROMETHORPHAN/QUINIDINE [Suspect]
     Active Substance: DEXTROMETHORPHAN HYDROBROMIDE\QUINIDINE SULFATE
     Dosage: 20/10MG, UNK
     Route: 065

REACTIONS (2)
  - Corticobasal degeneration [Fatal]
  - Multiple system atrophy [Fatal]
